FAERS Safety Report 18884640 (Version 2)
Quarter: 2022Q2

REPORT INFORMATION
  Report Type: Other
  Country: DO (occurrence: None)
  Receive Date: 20210211
  Receipt Date: 20220630
  Transmission Date: 20220721
  Serious: No
  Sender: FDA-Public Use
  Company Number: DO-ROCHE-2767881

PATIENT
  Sex: Female
  Weight: 53 kg

DRUGS (10)
  1. OCRELIZUMAB [Suspect]
     Active Substance: OCRELIZUMAB
     Indication: Multiple sclerosis
     Dosage: DOSING FORMULATION:300MG/250ML
     Route: 042
     Dates: start: 20191120, end: 20191120
  2. OCRELIZUMAB [Suspect]
     Active Substance: OCRELIZUMAB
     Dosage: DOSING FORMULATION:300MG/250ML
     Route: 042
     Dates: start: 20191204, end: 20191204
  3. OCRELIZUMAB [Suspect]
     Active Substance: OCRELIZUMAB
     Dosage: DOSING FORMULATION:600MG/500ML
     Route: 042
     Dates: start: 20200715, end: 20200715
  4. OCRELIZUMAB [Suspect]
     Active Substance: OCRELIZUMAB
     Dosage: DOSING FORMULATION 600MG/500ML
     Route: 042
     Dates: start: 20210203, end: 20210203
  5. SOLU-MEDROL [Concomitant]
     Active Substance: METHYLPREDNISOLONE SODIUM SUCCINATE
     Route: 042
     Dates: start: 20200715, end: 20200715
  6. SOLU-MEDROL [Concomitant]
     Active Substance: METHYLPREDNISOLONE SODIUM SUCCINATE
     Route: 042
     Dates: start: 20191204, end: 20191204
  7. ACETAMINOPHEN [Concomitant]
     Active Substance: ACETAMINOPHEN
     Dosage: NEXT DOSE ON 03/FEB/2021
     Route: 048
     Dates: start: 20191204, end: 20191204
  8. ACETAMINOPHEN [Concomitant]
     Active Substance: ACETAMINOPHEN
     Route: 048
     Dates: start: 20200715, end: 20200715
  9. HYDROCHLOROTHIAZIDE [Concomitant]
     Active Substance: HYDROCHLOROTHIAZIDE
     Route: 048
     Dates: start: 2015
  10. LOSARTAN POTASSIUM [Concomitant]
     Active Substance: LOSARTAN POTASSIUM
     Route: 048
     Dates: start: 2015

REACTIONS (1)
  - SARS-CoV-2 antibody test positive [Recovered/Resolved]

NARRATIVE: CASE EVENT DATE: 20200101
